FAERS Safety Report 18578118 (Version 1)
Quarter: 2020Q4

REPORT INFORMATION
  Report Type: Spontaneous
  Country: FR (occurrence: FR)
  Receive Date: 20201204
  Receipt Date: 20201204
  Transmission Date: 20210114
  Serious: Yes (Other)
  Sender: FDA-Public Use
  Company Number: FR-APOTEX-2020AP023203

PATIENT
  Age: 64 Year
  Sex: Female

DRUGS (7)
  1. ACEBUTOLOL [Concomitant]
     Active Substance: ACEBUTOLOL
     Indication: HYPERTENSION
     Dosage: 200 MG, QD
     Route: 048
     Dates: start: 1975
  2. DEROXAT [Suspect]
     Active Substance: PAROXETINE HYDROCHLORIDE
     Indication: DEPRESSION
     Dosage: 1 DF, QD
     Route: 048
     Dates: start: 20001005
  3. DEROXAT [Suspect]
     Active Substance: PAROXETINE HYDROCHLORIDE
     Dosage: 0.5 DOSAGE FORM, Q.O.D.
     Route: 048
  4. PRAVASTATIN SODIUM. [Concomitant]
     Active Substance: PRAVASTATIN SODIUM
     Indication: BLOOD CHOLESTEROL ABNORMAL
     Dosage: 5 MG, QD
     Route: 048
     Dates: start: 2017
  5. DEROXAT [Suspect]
     Active Substance: PAROXETINE HYDROCHLORIDE
     Dosage: 0.5 DOSAGE FORM, QD
     Route: 048
  6. APROVEL [Concomitant]
     Active Substance: IRBESARTAN
     Indication: HYPERTENSION
     Dosage: 300 MG, QD
     Route: 048
     Dates: start: 2012
  7. EUTIROX [Concomitant]
     Active Substance: LEVOTHYROXINE SODIUM
     Indication: THYROID DISORDER
     Dosage: 87.5 MILLIGRAM, QD
     Route: 048
     Dates: start: 20200512

REACTIONS (11)
  - Oxygen saturation decreased [Unknown]
  - Overweight [Unknown]
  - Hyperhidrosis [Not Recovered/Not Resolved]
  - Hypopnoea [Unknown]
  - Dyspnoea [Unknown]
  - Thyroid disorder [Unknown]
  - Myocardial ischaemia [Unknown]
  - Sleep apnoea syndrome [Unknown]
  - Bronchial disorder [Unknown]
  - Night sweats [Not Recovered/Not Resolved]
  - Adverse reaction [Unknown]
